FAERS Safety Report 7320515-6 (Version None)
Quarter: 2011Q1

REPORT INFORMATION
  Report Type: 
  Country: None (occurrence: None)
  Receive Date: 20110228
  Receipt Date: 20110225
  Transmission Date: 20110831
  Serious: Yes (Congenital Anomaly)
  Sender: FDA-Public Use
  Company Number: US-ABBOTT-10P-163-0690188-00

PATIENT

DRUGS (2)
  1. COMBIVIR [Suspect]
     Indication: DRUG EXPOSURE DURING PREGNANCY
     Route: 064
  2. KALETRA [Suspect]
     Indication: DRUG EXPOSURE DURING PREGNANCY
     Route: 064

REACTIONS (2)
  - CEREBELLAR HYPOPLASIA [None]
  - DRUG EXPOSURE DURING PREGNANCY [None]
